FAERS Safety Report 7284462-0 (Version None)
Quarter: 2011Q1

REPORT INFORMATION
  Report Type: 
  Country: None (occurrence: None)
  Receive Date: 20110209
  Receipt Date: 20110203
  Transmission Date: 20110831
  Serious: Yes (Other)
  Sender: FDA-Public Use
  Company Number: BR-PFIZER INC-2011019248

PATIENT
  Sex: Female

DRUGS (4)
  1. TRILAX [Concomitant]
     Indication: MYALGIA
     Dosage: UNK
     Dates: start: 20070101
  2. CELEBRA [Suspect]
     Indication: FIBROMYALGIA
     Dosage: 200 MG, UNK
     Route: 048
     Dates: start: 20100101, end: 20100101
  3. CELEBRA [Suspect]
     Indication: PAIN
  4. NOVALGINA [Concomitant]
     Indication: MYALGIA
     Dosage: 35 DROPS, 1X/DAY AS NEEDED
     Dates: start: 20070101

REACTIONS (2)
  - RENAL PAIN [None]
  - ABDOMINAL PAIN [None]
